FAERS Safety Report 5835251-2 (Version None)
Quarter: 2008Q3

REPORT INFORMATION
  Report Type: 
  Country: None (occurrence: None)
  Receive Date: 20080806
  Receipt Date: 20080801
  Transmission Date: 20090109
  Serious: Yes (Disabling, Other)
  Sender: FDA-Public Use
  Company Number: AU-ASTRAZENECA-2008AP03928

PATIENT
  Age: 59 Year
  Sex: Male
  Weight: 105 kg

DRUGS (3)
  1. CRESTOR [Suspect]
     Indication: HYPERLIPIDAEMIA
     Route: 048
     Dates: start: 20080115, end: 20080204
  2. CALTRATE [Concomitant]
     Dates: start: 20080115, end: 20080211
  3. VITAMIN D [Concomitant]
     Dates: start: 20080115, end: 20080211

REACTIONS (2)
  - MUSCULAR WEAKNESS [None]
  - PERONEAL NERVE PALSY [None]
